FAERS Safety Report 19068745 (Version 1)
Quarter: 2021Q1

REPORT INFORMATION
  Report Type: Spontaneous
  Country: US (occurrence: US)
  Receive Date: 20210328
  Receipt Date: 20210328
  Transmission Date: 20210420
  Serious: No
  Sender: FDA-Public Use
  Company Number: None

PATIENT
  Age: 78 Year
  Sex: Male
  Weight: 65.3 kg

DRUGS (9)
  1. D3 HIGH POTENCY [Concomitant]
  2. HERCEPTIN HYLECTA [Concomitant]
     Active Substance: HYALURONIDASE-OYSK\TRASTUZUMAB
  3. IRON [Concomitant]
     Active Substance: IRON
  4. VITAMIN C [Concomitant]
     Active Substance: ASCORBIC ACID
  5. OMEGA 3?6?9 COMPLEX [Concomitant]
  6. SELENIUM [Concomitant]
     Active Substance: SELENIUM
  7. TURKEY TAIL MUSHROOM [Concomitant]
  8. CAPECITABINE. [Suspect]
     Active Substance: CAPECITABINE
     Indication: BREAST CANCER
     Route: 048
     Dates: start: 20210101, end: 20210324
  9. GINKGO BILOBA [Concomitant]
     Active Substance: GINKGO

REACTIONS (1)
  - Disease progression [None]

NARRATIVE: CASE EVENT DATE: 20210324
